FAERS Safety Report 7313139-8 (Version None)
Quarter: 2011Q1

REPORT INFORMATION
  Report Type: 
  Country: None (occurrence: None)
  Receive Date: 20110215
  Receipt Date: 20110215
  Transmission Date: 20110831
  Serious: No
  Sender: FDA-Public Use
  Company Number: None

PATIENT
  Sex: Female

DRUGS (2)
  1. HYDROCHLOROTHIAZIDE [Suspect]
     Dosage: 1 TABLET TID PO
     Route: 048
     Dates: start: 20110117, end: 20110214
  2. HYDROXYZINE [Suspect]
     Indication: ANXIETY
     Dosage: 1 TABLET TID PO
     Route: 048
     Dates: start: 20110214

REACTIONS (3)
  - DRUG DISPENSING ERROR [None]
  - WRONG DRUG ADMINISTERED [None]
  - MEDICATION ERROR [None]
